FAERS Safety Report 9282483 (Version 1)
Quarter: 2013Q2

REPORT INFORMATION
  Report Type: Spontaneous
  Country: HR (occurrence: HR)
  Receive Date: 20130510
  Receipt Date: 20130510
  Transmission Date: 20140414
  Serious: Yes (Other)
  Sender: FDA-Public Use
  Company Number: HR-PFIZER INC-2013143991

PATIENT
  Age: 44 Year
  Sex: Male

DRUGS (2)
  1. CONTROLOC [Suspect]
     Indication: GASTROOESOPHAGEAL REFLUX DISEASE
     Dosage: 40 MG, 1X/DAY
     Route: 065
     Dates: end: 201301
  2. CONTROLOC [Suspect]
     Indication: GASTRITIS

REACTIONS (1)
  - Gynaecomastia [Unknown]
